FAERS Safety Report 15588294 (Version 2)
Quarter: 2018Q4

REPORT INFORMATION
  Report Type: Report from Study
  Country: US (occurrence: US)
  Receive Date: 20181105
  Receipt Date: 20181105
  Transmission Date: 20190205
  Serious: Yes (Other)
  Sender: FDA-Public Use
  Company Number: US-JAZZ-2018-US-012780

PATIENT
  Sex: Female

DRUGS (3)
  1. XYREM [Suspect]
     Active Substance: SODIUM OXYBATE
     Indication: NARCOLEPSY
     Dosage: 2.25 G, BID
     Route: 048
     Dates: start: 201808, end: 2018
  2. XYREM [Suspect]
     Active Substance: SODIUM OXYBATE
     Indication: CATAPLEXY
     Dosage: INCREASED DOSE
     Route: 048
     Dates: start: 2018, end: 2018
  3. XYREM [Suspect]
     Active Substance: SODIUM OXYBATE
     Dosage: DECREASED DOSE
     Route: 048
     Dates: start: 2018, end: 2018

REACTIONS (11)
  - Increased appetite [Unknown]
  - Disturbance in attention [Unknown]
  - Enuresis [Recovered/Resolved]
  - Weight decreased [Unknown]
  - Malaise [Not Recovered/Not Resolved]
  - Feeling abnormal [Recovered/Resolved]
  - Dizziness [Recovered/Resolved]
  - Nausea [Recovered/Resolved]
  - Lethargy [Recovered/Resolved]
  - Decreased appetite [Not Recovered/Not Resolved]
  - Anxiety [Unknown]

NARRATIVE: CASE EVENT DATE: 2018
